FAERS Safety Report 7991766-2 (Version None)
Quarter: 2011Q4

REPORT INFORMATION
  Report Type: 
  Country: None (occurrence: None)
  Receive Date: 20111219
  Receipt Date: 20111207
  Transmission Date: 20120403
  Serious: Yes (Other)
  Sender: FDA-Public Use
  Company Number: PHHY2011IT106869

PATIENT
  Age: 48 Year
  Sex: Male

DRUGS (1)
  1. ZOLEDRONIC ACID [Suspect]
     Dosage: UNK UKN, UNK
     Dates: start: 20100401

REACTIONS (6)
  - HEPATIC LESION [None]
  - DECREASED APPETITE [None]
  - ASTHENIA [None]
  - WEIGHT DECREASED [None]
  - LUNG DISORDER [None]
  - PAIN [None]
